FAERS Safety Report 7694095-X (Version None)
Quarter: 2011Q3

REPORT INFORMATION
  Report Type: 
  Country: None (occurrence: None)
  Receive Date: 20110819
  Receipt Date: 20110808
  Transmission Date: 20111222
  Serious: Yes (Hospitalization)
  Sender: FDA-Public Use
  Company Number: CZ-JNJFOC-20110805270

PATIENT
  Age: 70 Year
  Sex: Female
  Weight: 67 kg

DRUGS (13)
  1. SIMPONI [Suspect]
     Route: 058
     Dates: start: 20110511
  2. SIMPONI [Suspect]
     Route: 058
     Dates: start: 20110606
  3. PRESTARIUM [Concomitant]
  4. SIMPONI [Suspect]
     Route: 058
     Dates: start: 20110706
  5. TENAXUM [Concomitant]
     Indication: HYPERTENSION
  6. METHOTREXATE [Concomitant]
     Indication: RHEUMATOID ARTHRITIS
  7. ACIDUM FOLICUM [Concomitant]
  8. ALENDRONATE SODIUM [Concomitant]
  9. SIMPONI [Suspect]
     Indication: RHEUMATOID ARTHRITIS
     Route: 058
     Dates: start: 20110316
  10. SIMPONI [Suspect]
     Route: 058
     Dates: start: 20110413
  11. CALCIUM CARBONATE [Concomitant]
     Indication: OSTEOPOROSIS
  12. AGEN [Concomitant]
  13. ATORIS [Concomitant]
     Indication: HYPERCHOLESTEROLAEMIA

REACTIONS (4)
  - MYALGIA [None]
  - VISUAL IMPAIRMENT [None]
  - TREMOR [None]
  - DIZZINESS [None]
